FAERS Safety Report 10252169 (Version 4)
Quarter: 2014Q4

REPORT INFORMATION
  Report Type: Spontaneous
  Country: JP (occurrence: JP)
  Receive Date: 20140623
  Receipt Date: 20141002
  Transmission Date: 20150528
  Serious: Yes (Hospitalization, Other)
  Sender: FDA-Public Use
  Company Number: JP-JNJFOC-20140611287

PATIENT
  Age: 73 Year
  Sex: Female
  Weight: 50 kg

DRUGS (8)
  1. PEGINTRON [Suspect]
     Active Substance: PEGINTERFERON ALFA-2B
     Indication: CHRONIC HEPATITIS C
     Route: 058
     Dates: start: 20140305, end: 20140409
  2. REBETOL [Suspect]
     Active Substance: RIBAVIRIN
     Indication: CHRONIC HEPATITIS C
     Route: 048
     Dates: start: 20140405, end: 20140415
  3. ALDACTONE [Concomitant]
     Active Substance: SPIRONOLACTONE
     Indication: HYPERTENSION
     Route: 048
     Dates: end: 20140415
  4. SOVRIAD [Suspect]
     Active Substance: SIMEPREVIR
     Indication: CHRONIC HEPATITIS C
     Route: 048
     Dates: start: 20140305, end: 20140414
  5. REBETOL [Suspect]
     Active Substance: RIBAVIRIN
     Indication: CHRONIC HEPATITIS C
     Dosage: 200 MG MORNING, 400 MG EVENING
     Route: 048
     Dates: start: 20140305, end: 20140404
  6. MAGMITT [Concomitant]
     Active Substance: MAGNESIUM OXIDE
     Indication: CONSTIPATION
     Route: 048
  7. FAMOTIDINE. [Concomitant]
     Active Substance: FAMOTIDINE
     Indication: GASTRIC ULCER
     Route: 048
     Dates: end: 20140415
  8. YODEL [Concomitant]
     Active Substance: SENNA LEAF
     Indication: CONSTIPATION
     Route: 048
     Dates: end: 20140415

REACTIONS (6)
  - Melaena [Recovered/Resolved]
  - Platelet count decreased [Recovering/Resolving]
  - Cerebral haemorrhage [Recovered/Resolved with Sequelae]
  - Gastric ulcer [Recovered/Resolved]
  - Anaemia [Unknown]
  - White blood cell count decreased [Recovered/Resolved]

NARRATIVE: CASE EVENT DATE: 20140312
